FAERS Safety Report 7998535-8 (Version None)
Quarter: 2011Q4

REPORT INFORMATION
  Report Type: 
  Country: None (occurrence: None)
  Receive Date: 20111221
  Receipt Date: 20111220
  Transmission Date: 20120403
  Serious: Yes (Other)
  Sender: FDA-Public Use
  Company Number: US-JNJFOC-2005128302

PATIENT
  Age: 14 Year
  Sex: Female
  Weight: 49.9 kg

DRUGS (2)
  1. SUDAFED 24 HOUR [Suspect]
     Route: 048
  2. SUDAFED 24 HOUR [Suspect]
     Indication: ACCIDENTAL OVERDOSE
     Dosage: DAILY DOSE TEXT: 1 TABLET, X4 WITHIN ONE DAY
     Route: 048
     Dates: start: 20050911, end: 20050911

REACTIONS (3)
  - SOMNOLENCE [None]
  - ACCIDENTAL OVERDOSE [None]
  - MEDICATION ERROR [None]
